FAERS Safety Report 16792158 (Version 1)
Quarter: 2019Q3

REPORT INFORMATION
  Report Type: Spontaneous
  Country: US (occurrence: US)
  Receive Date: 20190910
  Receipt Date: 20190910
  Transmission Date: 20191005
  Serious: No
  Sender: FDA-Public Use
  Company Number: US-ARRAY-2019-06287

PATIENT

DRUGS (2)
  1. BRAFTOVI [Suspect]
     Active Substance: ENCORAFENIB
     Indication: MALIGNANT NEOPLASM OF THORAX
     Dosage: 450 MG, QD
     Route: 048
     Dates: start: 20190612
  2. MEKTOVI [Suspect]
     Active Substance: BINIMETINIB
     Indication: MALIGNANT NEOPLASM OF THORAX
     Dosage: 45 MG, BID
     Route: 048
     Dates: start: 20190612

REACTIONS (6)
  - Vomiting [Unknown]
  - Vision blurred [Unknown]
  - Musculoskeletal pain [Unknown]
  - Dizziness [Unknown]
  - Nausea [Unknown]
  - Product use in unapproved indication [Unknown]
